FAERS Safety Report 15339312 (Version 1)
Quarter: 2018Q3

REPORT INFORMATION
  Report Type: Spontaneous
  Country: US (occurrence: US)
  Receive Date: 20180831
  Receipt Date: 20180831
  Transmission Date: 20181010
  Serious: Yes (Other)
  Sender: FDA-Public Use
  Company Number: US-ELI_LILLY_AND_COMPANY-US201808011247

PATIENT
  Age: 56 Year
  Sex: Female

DRUGS (1)
  1. FORTEO [Suspect]
     Active Substance: TERIPARATIDE
     Indication: OSTEOPOROSIS
     Dosage: UNK, DAILY
     Route: 058
     Dates: start: 20180511, end: 20180728

REACTIONS (28)
  - Tooth loss [Not Recovered/Not Resolved]
  - Vision blurred [Unknown]
  - Injection site bruising [Recovered/Resolved]
  - Injection site haemorrhage [Recovered/Resolved]
  - Injection site urticaria [Recovered/Resolved]
  - Muscular weakness [Unknown]
  - Frequent bowel movements [Not Recovered/Not Resolved]
  - Syncope [Unknown]
  - Bruxism [Unknown]
  - Urticaria [Recovered/Resolved]
  - Arthropod bite [Recovered/Resolved]
  - Asthenia [Unknown]
  - Gastritis [Recovered/Resolved]
  - Migraine [Unknown]
  - Bone disorder [Unknown]
  - Sensitivity of teeth [Unknown]
  - Fall [Unknown]
  - Mobility decreased [Unknown]
  - Limb discomfort [Recovered/Resolved]
  - Back pain [Unknown]
  - Blood urine present [Unknown]
  - Haematochezia [Unknown]
  - Neck pain [Unknown]
  - Gingival disorder [Unknown]
  - Heart rate increased [Unknown]
  - Headache [Unknown]
  - Dizziness [Unknown]
  - Injection site swelling [Recovered/Resolved]

NARRATIVE: CASE EVENT DATE: 20180511
